FAERS Safety Report 9311666 (Version 1)
Quarter: 2013Q1

REPORT INFORMATION
  Report Type: Spontaneous
  Country: BR (occurrence: None)
  Receive Date: 20130207
  Receipt Date: 20130207
  Transmission Date: 20140127
  Serious: Yes (Life-Threatening, Hospitalization)
  Sender: FDA-Public Use
  Company Number: 7185418

PATIENT
  Age: 33 Year
  Sex: Female

DRUGS (1)
  1. REBIF (INTERFERON BETA-1A) [Suspect]
     Indication: RELAPSING-REMITTING MULTIPLE SCLEROSIS
     Dates: start: 20100526

REACTIONS (4)
  - Pain [None]
  - Nephrolithiasis [None]
  - Renal failure [None]
  - Multiple sclerosis [None]
